FAERS Safety Report 17594236 (Version 1)
Quarter: 2020Q1

REPORT INFORMATION
  Report Type: Spontaneous
  Country: US (occurrence: US)
  Receive Date: 20200327
  Receipt Date: 20200327
  Transmission Date: 20200409
  Serious: Yes (Other)
  Sender: FDA-Public Use
  Company Number: US-NAPPMUNDI-USA-2020-0150588

PATIENT

DRUGS (2)
  1. OXYCONTIN [Suspect]
     Active Substance: OXYCODONE HYDROCHLORIDE
     Indication: PAIN MANAGEMENT
     Route: 048
  2. DILAUDID [Suspect]
     Active Substance: HYDROMORPHONE HYDROCHLORIDE
     Indication: PAIN MANAGEMENT
     Route: 048

REACTIONS (8)
  - Drug dependence [Unknown]
  - Overdose [Unknown]
  - Liver injury [Unknown]
  - Fracture [Unknown]
  - Mental disorder [Unknown]
  - Impaired work ability [Unknown]
  - Renal injury [Unknown]
  - Dental caries [Unknown]
